FAERS Safety Report 24276506 (Version 1)
Quarter: 2024Q3

REPORT INFORMATION
  Report Type: Spontaneous
  Country: GB (occurrence: GB)
  Receive Date: 20240903
  Receipt Date: 20240903
  Transmission Date: 20241016
  Serious: Yes (Disabling)
  Sender: RANBAXY
  Company Number: GB-SUN PHARMACEUTICAL INDUSTRIES LTD-2024RR-465820

PATIENT
  Age: 61 Year
  Sex: Female
  Weight: 52 kg

DRUGS (2)
  1. CIPROFLOXACIN [Suspect]
     Active Substance: CIPROFLOXACIN
     Indication: Bacterial sepsis
     Dosage: EVERY 6 HOURS
     Route: 065
     Dates: start: 20240811, end: 20240817
  2. METRONIDAZOLE [Concomitant]
     Active Substance: METRONIDAZOLE
     Indication: Gastrointestinal infection
     Dosage: UNK
     Route: 065
     Dates: start: 20240811, end: 20240817

REACTIONS (1)
  - Psychotic disorder [Recovered/Resolved with Sequelae]

NARRATIVE: CASE EVENT DATE: 20240813
